FAERS Safety Report 22129821 (Version 1)
Quarter: 2023Q1

REPORT INFORMATION
  Report Type: Spontaneous
  Country: None (occurrence: US)
  Receive Date: 20230323
  Receipt Date: 20230323
  Transmission Date: 20230417
  Serious: Yes (Other)
  Sender: FDA-Public Use
  Company Number: US-Ajanta Pharma USA Inc.-2139415

PATIENT
  Age: 76 Year
  Sex: Male
  Weight: 91.818 kg

DRUGS (6)
  1. CHOLESTYRAMINE [Suspect]
     Active Substance: CHOLESTYRAMINE
     Indication: Cholecystectomy
     Route: 048
     Dates: start: 20230311, end: 20230311
  2. LOSARTAN [Concomitant]
     Active Substance: LOSARTAN
  3. CARVEDILOL [Concomitant]
     Active Substance: CARVEDILOL
  4. XARELTO [Concomitant]
     Active Substance: RIVAROXABAN
  5. ALLOPURINOL [Concomitant]
     Active Substance: ALLOPURINOL
  6. SPIRONOLACTONE [Concomitant]
     Active Substance: SPIRONOLACTONE

REACTIONS (3)
  - Choking sensation [Recovered/Resolved]
  - Dyspnoea [Recovered/Resolved]
  - Foreign body in throat [Recovered/Resolved]

NARRATIVE: CASE EVENT DATE: 20230311
